FAERS Safety Report 5732904-1 (Version None)
Quarter: 2008Q2

REPORT INFORMATION
  Report Type: 
  Country: None (occurrence: None)
  Receive Date: 20080509
  Receipt Date: 20080225
  Transmission Date: 20081010
  Serious: No
  Sender: FDA-Public Use
  Company Number: A0711632A

PATIENT
  Age: 60 Year
  Sex: Female

DRUGS (3)
  1. COREG CR [Suspect]
     Dosage: 40MG SINGLE DOSE
     Route: 048
     Dates: start: 20080221
  2. NORVASC [Concomitant]
  3. BUSPAR [Concomitant]

REACTIONS (7)
  - FATIGUE [None]
  - FEELING ABNORMAL [None]
  - HYPERSOMNIA [None]
  - ILL-DEFINED DISORDER [None]
  - PERFORMANCE STATUS DECREASED [None]
  - SOMNOLENCE [None]
  - SPEECH DISORDER [None]
